FAERS Safety Report 18188072 (Version 2)
Quarter: 2021Q2

REPORT INFORMATION
  Report Type: Spontaneous
  Country: US (occurrence: US)
  Receive Date: 20200824
  Receipt Date: 20210524
  Transmission Date: 20210717
  Serious: Yes (Other)
  Sender: FDA-Public Use
  Company Number: US-PFIZER INC-2020319224

PATIENT
  Age: 72 Year
  Sex: Female
  Weight: 90.26 kg

DRUGS (1)
  1. XELJANZ [Suspect]
     Active Substance: TOFACITINIB CITRATE
     Indication: RHEUMATOID ARTHRITIS
     Dosage: 5 MG, 2X/DAY(5MG BY MOUTH TWICE PER DAY (MORNING AND EVENING))
     Route: 048

REACTIONS (3)
  - Haemorrhage [Unknown]
  - Urinary tract infection [Recovered/Resolved]
  - Hypertension [Unknown]

NARRATIVE: CASE EVENT DATE: 202002
